FAERS Safety Report 5503939-9 (Version None)
Quarter: 2007Q4

REPORT INFORMATION
  Report Type: 
  Country: None (occurrence: None)
  Receive Date: 20071030
  Receipt Date: 20071030
  Transmission Date: 20080405
  Serious: No
  Sender: FDA-Public Use
  Company Number: None

PATIENT
  Age: 83 Year
  Sex: Female

DRUGS (8)
  1. LYRICA [Suspect]
     Indication: TRIGEMINAL NEURALGIA
     Dates: start: 20060911, end: 20060911
  2. TYLENOL (CAPLET) [Concomitant]
  3. SIMVASTATIN [Concomitant]
  4. ASPIRIN [Concomitant]
  5. MAGNESIUM HYDROXIDE TAB [Concomitant]
  6. ATENOLOL [Concomitant]
  7. LOSARTAN POTASSIUM [Concomitant]
  8. HYDROCHLOROTHIAZIDE [Concomitant]

REACTIONS (8)
  - ADVERSE DRUG REACTION [None]
  - ASTHENIA [None]
  - ATAXIA [None]
  - CEREBRAL ISCHAEMIA [None]
  - FALL [None]
  - GAIT DISTURBANCE [None]
  - NEUROPATHY PERIPHERAL [None]
  - SENSORY LOSS [None]
